FAERS Safety Report 6896752-1 (Version None)
Quarter: 2010Q3

REPORT INFORMATION
  Report Type: 
  Country: None (occurrence: None)
  Receive Date: 20100802
  Receipt Date: 20070125
  Transmission Date: 20110219
  Serious: No
  Sender: FDA-Public Use
  Company Number: US-PFIZER INC-2007007379

PATIENT
  Sex: Female

DRUGS (2)
  1. LYRICA [Suspect]
     Indication: COMPLEX REGIONAL PAIN SYNDROME
     Dates: start: 20070111
  2. LIPITOR [Concomitant]

REACTIONS (3)
  - EUPHORIC MOOD [None]
  - FEELING DRUNK [None]
  - SOMNOLENCE [None]
